FAERS Safety Report 4817661-5 (Version None)
Quarter: 2005Q3

REPORT INFORMATION
  Report Type: 
  Country: None (occurrence: None)
  Receive Date: 20050929
  Receipt Date: 20050610
  Transmission Date: 20060218
  Serious: No
  Sender: FDA-Public Use
  Company Number: 05P-163-0302863-00

PATIENT
  Age: 5 Year
  Sex: Female

DRUGS (3)
  1. HUMIRA [Suspect]
     Indication: JUVENILE ARTHRITIS
     Dosage: 1 IN 1 WEEK, SUBCUTANEOUS
     Route: 058
     Dates: start: 20050602
  2. METHOTREXATE [Concomitant]
  3. LEUCOVORIN CALCIUM [Concomitant]

REACTIONS (1)
  - HYPOKINESIA [None]
